FAERS Safety Report 20290301 (Version 1)
Quarter: 2022Q1

REPORT INFORMATION
  Report Type: Report from Study
  Country: US (occurrence: US)
  Receive Date: 20220104
  Receipt Date: 20220104
  Transmission Date: 20220424
  Serious: Yes (Hospitalization)
  Sender: FDA-Public Use
  Company Number: US-MYLANLABS-2022M1000345

PATIENT
  Age: 45 Year
  Sex: Male

DRUGS (10)
  1. ACYCLOVIR [Suspect]
     Active Substance: ACYCLOVIR
     Indication: Necrotising retinitis
     Dosage: UNK
     Route: 042
  2. ACYCLOVIR [Suspect]
     Active Substance: ACYCLOVIR
     Indication: Herpes simplex
  3. PREDNISONE [Suspect]
     Active Substance: PREDNISONE
     Indication: Necrotising retinitis
     Dosage: UNK
     Route: 065
  4. PREDNISONE [Suspect]
     Active Substance: PREDNISONE
     Indication: Herpes simplex
  5. GANCICLOVIR [Suspect]
     Active Substance: GANCICLOVIR
     Indication: Necrotising retinitis
     Dosage: UNK, 5 INJECTIONS
     Route: 065
  6. GANCICLOVIR [Suspect]
     Active Substance: GANCICLOVIR
     Indication: Herpes simplex
  7. FOSCARNET [Suspect]
     Active Substance: FOSCARNET
     Indication: Necrotising retinitis
     Dosage: UNK
  8. FOSCARNET [Suspect]
     Active Substance: FOSCARNET
     Indication: Herpes simplex
  9. FOSCARNET [Suspect]
     Active Substance: FOSCARNET
     Indication: Necrotising retinitis
     Dosage: UNK, 6 INJECTIONS
     Route: 065
  10. FOSCARNET [Suspect]
     Active Substance: FOSCARNET
     Indication: Herpes simplex

REACTIONS (1)
  - Drug ineffective [Unknown]
